FAERS Safety Report 10042628 (Version 1)
Quarter: 2014Q1

REPORT INFORMATION
  Report Type: Spontaneous
  Country: US (occurrence: None)
  Receive Date: 20140325
  Receipt Date: 20140325
  Transmission Date: 20141002
  Serious: Yes (Other)
  Sender: FDA-Public Use
  Company Number: 2014-00045

PATIENT
  Age: 63 Year
  Sex: Male

DRUGS (3)
  1. ZICAM EXTREME CONGESTION RELIEF [Suspect]
     Indication: NASOPHARYNGITIS
     Dates: start: 201312
  2. VERAPAMIL [Concomitant]
  3. CARVELDOL [Concomitant]

REACTIONS (1)
  - Anosmia [None]
